FAERS Safety Report 6940846-9 (Version None)
Quarter: 2010Q3

REPORT INFORMATION
  Report Type: 
  Country: None (occurrence: None)
  Receive Date: 20100825
  Receipt Date: 20100817
  Transmission Date: 20110219
  Serious: Yes (Life-Threatening)
  Sender: FDA-Public Use
  Company Number: GXKR2010GB09210

PATIENT
  Age: 75 Year
  Sex: Female

DRUGS (6)
  1. TRAMADOL (NGX) [Suspect]
     Dosage: 100 MG, QID
     Route: 065
  2. REVLIMID [Suspect]
     Indication: MULTIPLE MYELOMA
     Dosage: 10 MG/DAY
     Route: 048
     Dates: start: 20100630, end: 20100715
  3. ACYCLOVIR SODIUM [Concomitant]
  4. DEXAMETHASONE [Concomitant]
  5. FRAGMIN [Concomitant]
  6. TRAMADOL HCL [Concomitant]
     Dosage: 5000 IU, QD
     Route: 058

REACTIONS (1)
  - INAPPROPRIATE ANTIDIURETIC HORMONE SECRETION [None]
